FAERS Safety Report 14222092 (Version 1)
Quarter: 2017Q4

REPORT INFORMATION
  Report Type: Spontaneous
  Country: US (occurrence: US)
  Receive Date: 20171124
  Receipt Date: 20171124
  Transmission Date: 20180321
  Serious: Yes (Hospitalization)
  Sender: FDA-Public Use
  Company Number: US-ROCHE-2028331

PATIENT
  Age: 67 Year
  Sex: Male

DRUGS (2)
  1. ESBRIET [Suspect]
     Active Substance: PIRFENIDONE
     Indication: IDIOPATHIC PULMONARY FIBROSIS
     Dosage: 3 PILLS, 3 TIMES PER DAY, ONGOING: UNKNOWN
     Route: 065
     Dates: start: 2017
  2. INSULIN [Concomitant]
     Active Substance: INSULIN NOS
     Indication: TYPE 2 DIABETES MELLITUS
     Route: 065

REACTIONS (2)
  - Heart rate increased [Not Recovered/Not Resolved]
  - Ill-defined disorder [Unknown]

NARRATIVE: CASE EVENT DATE: 20171116
